FAERS Safety Report 5961699-1 (Version None)
Quarter: 2008Q4

REPORT INFORMATION
  Report Type: 
  Country: None (occurrence: None)
  Receive Date: 20081121
  Receipt Date: 20081121
  Transmission Date: 20090506
  Serious: Yes (Hospitalization)
  Sender: FDA-Public Use
  Company Number: JP-ABBOTT-08P-087-0483439-00

PATIENT
  Sex: Female
  Weight: 9.6 kg

DRUGS (11)
  1. CLARITHROMYCIN [Suspect]
     Indication: PHARYNGITIS
     Route: 048
     Dates: start: 20080228, end: 20080228
  2. CLARITHROMYCIN [Suspect]
     Indication: BRONCHITIS
     Route: 048
     Dates: start: 20080228, end: 20080228
  3. PARACETAMOL [Suspect]
     Indication: PYREXIA
     Dosage: NOT REPORTED
     Route: 054
     Dates: start: 20080225, end: 20080225
  4. AMOXICILLIN [Suspect]
     Indication: DRUG USE FOR UNKNOWN INDICATION
     Route: 048
     Dates: start: 20080220, end: 20080224
  5. AMOXICILLIN [Suspect]
     Route: 048
     Dates: start: 20080220, end: 20080224
  6. CEFDITOREN PIVOXIL [Suspect]
     Indication: DRUG USE FOR UNKNOWN INDICATION
     Route: 048
     Dates: start: 20080225, end: 20080228
  7. CEFDITOREN PIVOXIL [Suspect]
     Route: 048
     Dates: start: 20080225, end: 20080228
  8. LEBENIN [Concomitant]
     Indication: DRUG USE FOR UNKNOWN INDICATION
     Route: 048
     Dates: start: 20080226, end: 20080228
  9. MEDICATIONS UNKNOWN [Concomitant]
     Indication: DRUG USE FOR UNKNOWN INDICATION
     Dosage: NOT REPORTED
  10. CYPROHEPTADINE HYDROCHLORIDE [Concomitant]
     Indication: DRUG USE FOR UNKNOWN INDICATION
     Route: 048
     Dates: start: 20080223, end: 20080227
  11. MEQUITAZINE [Concomitant]
     Indication: DRUG USE FOR UNKNOWN INDICATION
     Route: 048
     Dates: start: 20080223, end: 20080228

REACTIONS (2)
  - RENAL FAILURE ACUTE [None]
  - TUBULOINTERSTITIAL NEPHRITIS [None]
